FAERS Safety Report 6461642-5 (Version None)
Quarter: 2009Q4

REPORT INFORMATION
  Report Type: 
  Country: None (occurrence: None)
  Receive Date: 20091130
  Receipt Date: 20091118
  Transmission Date: 20100525
  Serious: Yes (Other)
  Sender: FDA-Public Use
  Company Number: CH-TEVA-216306ISR

PATIENT
  Age: 32 Year

DRUGS (2)
  1. COPAXONE [Suspect]
     Indication: MULTIPLE SCLEROSIS
     Route: 058
     Dates: start: 20080229, end: 20080401
  2. LAMOTRIGINE [Suspect]
     Indication: MULTIPLE SCLEROSIS
     Dates: start: 20060101

REACTIONS (1)
  - PREMATURE BABY [None]
